FAERS Safety Report 6715319-9 (Version None)
Quarter: 2010Q2

REPORT INFORMATION
  Report Type: 
  Country: None (occurrence: None)
  Receive Date: 20100507
  Receipt Date: 20100507
  Transmission Date: 20101027
  Serious: Yes (Hospitalization)
  Sender: FDA-Public Use
  Company Number: None

PATIENT
  Age: 3 Year
  Sex: Male
  Weight: 14 kg

DRUGS (1)
  1. CHILDREN'S MOTRIN [Suspect]
     Indication: PYREXIA
     Dosage: 1 TEASPOON 6 - 8 HOURS PO
     Route: 048
     Dates: start: 20100425, end: 20100426

REACTIONS (2)
  - GASTROENTERITIS VIRAL [None]
  - PRODUCT QUALITY ISSUE [None]
